FAERS Safety Report 5509513-2 (Version None)
Quarter: 2007Q4

REPORT INFORMATION
  Report Type: 
  Country: None (occurrence: None)
  Receive Date: 20071029
  Receipt Date: 20070807
  Transmission Date: 20080405
  Serious: No
  Sender: FDA-Public Use
  Company Number: 013096

PATIENT
  Age: 37 Year
  Sex: Male

DRUGS (1)
  1. PRIALT [Suspect]
     Indication: DRUG USE FOR UNKNOWN INDICATION
     Dosage: UG, ONCE/HOUR, INTRATHECAL
     Route: 037

REACTIONS (1)
  - CATHETER RELATED COMPLICATION [None]
